FAERS Safety Report 24797121 (Version 2)
Quarter: 2025Q1

REPORT INFORMATION
  Report Type: Spontaneous
  Country: CA (occurrence: CA)
  Receive Date: 20250101
  Receipt Date: 20250226
  Transmission Date: 20250409
  Serious: Yes (Death, Other)
  Sender: BRISTOL-MYERS SQUIBB COMPANY
  Company Number: CA-BRISTOL-MYERS SQUIBB COMPANY-2025-000465

PATIENT
  Age: 40 Year
  Sex: Female

DRUGS (376)
  1. ORENCIA [Suspect]
     Active Substance: ABATACEPT
     Indication: Rheumatoid arthritis
     Route: 058
  2. ORENCIA [Suspect]
     Active Substance: ABATACEPT
     Indication: Rheumatoid arthritis
  3. ORENCIA [Suspect]
     Active Substance: ABATACEPT
  4. ORENCIA [Suspect]
     Active Substance: ABATACEPT
  5. ORENCIA [Suspect]
     Active Substance: ABATACEPT
  6. TRIAMCINOLONE ACETONIDE [Suspect]
     Active Substance: TRIAMCINOLONE ACETONIDE
     Indication: Rheumatoid arthritis
     Route: 014
  7. ACETAMINOPHEN [Concomitant]
     Active Substance: ACETAMINOPHEN
     Indication: Rheumatoid arthritis
  8. ACETAMINOPHEN [Concomitant]
     Active Substance: ACETAMINOPHEN
  9. ACETAMINOPHEN [Concomitant]
     Active Substance: ACETAMINOPHEN
  10. ACETAMINOPHEN [Concomitant]
     Active Substance: ACETAMINOPHEN
  11. ACETAMINOPHEN [Concomitant]
     Active Substance: ACETAMINOPHEN
  12. ACETAMINOPHEN [Concomitant]
     Active Substance: ACETAMINOPHEN
  13. ACTEMRA [Concomitant]
     Active Substance: TOCILIZUMAB
     Indication: Rheumatoid arthritis
     Route: 058
  14. ACTEMRA [Concomitant]
     Active Substance: TOCILIZUMAB
     Route: 058
  15. ACTEMRA [Concomitant]
     Active Substance: TOCILIZUMAB
     Route: 016
  16. ACTEMRA [Concomitant]
     Active Substance: TOCILIZUMAB
  17. ACTEMRA [Concomitant]
     Active Substance: TOCILIZUMAB
  18. ACTEMRA [Concomitant]
     Active Substance: TOCILIZUMAB
  19. ACTEMRA [Concomitant]
     Active Substance: TOCILIZUMAB
  20. ACTEMRA [Concomitant]
     Active Substance: TOCILIZUMAB
  21. ACTEMRA [Concomitant]
     Active Substance: TOCILIZUMAB
  22. ACTEMRA [Concomitant]
     Active Substance: TOCILIZUMAB
  23. ACTEMRA [Concomitant]
     Active Substance: TOCILIZUMAB
     Route: 058
  24. ACTEMRA [Concomitant]
     Active Substance: TOCILIZUMAB
     Route: 058
  25. ACTEMRA [Concomitant]
     Active Substance: TOCILIZUMAB
     Route: 058
  26. ACTEMRA [Concomitant]
     Active Substance: TOCILIZUMAB
     Route: 058
  27. ACTEMRA [Concomitant]
     Active Substance: TOCILIZUMAB
     Route: 058
  28. ACTEMRA [Concomitant]
     Active Substance: TOCILIZUMAB
  29. ACTEMRA [Concomitant]
     Active Substance: TOCILIZUMAB
  30. ACTEMRA [Concomitant]
     Active Substance: TOCILIZUMAB
  31. ADALIMUMAB [Concomitant]
     Active Substance: ADALIMUMAB
     Indication: Rheumatoid arthritis
     Route: 058
  32. ADALIMUMAB [Concomitant]
     Active Substance: ADALIMUMAB
     Route: 058
  33. ADALIMUMAB [Concomitant]
     Active Substance: ADALIMUMAB
     Route: 058
  34. AIMOVIG [Concomitant]
     Active Substance: ERENUMAB-AOOE
     Indication: Migraine
  35. AIMOVIG [Concomitant]
     Active Substance: ERENUMAB-AOOE
  36. ALENDRONIC ACID [Concomitant]
     Active Substance: ALENDRONIC ACID
     Indication: Rheumatoid arthritis
     Route: 016
  37. ALENDRONIC ACID [Concomitant]
     Active Substance: ALENDRONIC ACID
     Route: 048
  38. ALENDRONIC ACID [Concomitant]
     Active Substance: ALENDRONIC ACID
     Route: 048
  39. ALENDRONIC ACID [Concomitant]
     Active Substance: ALENDRONIC ACID
  40. ALENDRONIC ACID [Concomitant]
     Active Substance: ALENDRONIC ACID
  41. ALENDRONIC ACID [Concomitant]
     Active Substance: ALENDRONIC ACID
     Route: 048
  42. ALENDRONIC ACID [Concomitant]
     Active Substance: ALENDRONIC ACID
  43. LEFLUNOMIDE [Concomitant]
     Active Substance: LEFLUNOMIDE
     Indication: Rheumatoid arthritis
  44. LEFLUNOMIDE [Concomitant]
     Active Substance: LEFLUNOMIDE
  45. PREDNISONE [Concomitant]
     Active Substance: PREDNISONE
     Indication: Rheumatoid arthritis
  46. PREDNISONE [Concomitant]
     Active Substance: PREDNISONE
     Route: 048
  47. PREDNISONE [Concomitant]
     Active Substance: PREDNISONE
     Route: 048
  48. PREDNISONE [Concomitant]
     Active Substance: PREDNISONE
  49. PREDNISONE [Concomitant]
     Active Substance: PREDNISONE
  50. PREDNISONE [Concomitant]
     Active Substance: PREDNISONE
     Route: 048
  51. PREDNISONE [Concomitant]
     Active Substance: PREDNISONE
     Route: 048
  52. PREDNISONE [Concomitant]
     Active Substance: PREDNISONE
     Route: 048
  53. PREDNISONE [Concomitant]
     Active Substance: PREDNISONE
     Route: 048
  54. APREMILAST [Concomitant]
     Active Substance: APREMILAST
     Indication: Rheumatoid arthritis
  55. ARAVA [Concomitant]
     Active Substance: LEFLUNOMIDE
     Indication: Rheumatoid arthritis
  56. ARAVA [Concomitant]
     Active Substance: LEFLUNOMIDE
  57. ARAVA [Concomitant]
     Active Substance: LEFLUNOMIDE
     Route: 048
  58. ARAVA [Concomitant]
     Active Substance: LEFLUNOMIDE
     Route: 048
  59. ARAVA [Concomitant]
     Active Substance: LEFLUNOMIDE
  60. ARAVA [Concomitant]
     Active Substance: LEFLUNOMIDE
     Route: 048
  61. ARAVA [Concomitant]
     Active Substance: LEFLUNOMIDE
     Route: 048
  62. AZATHIOPRINE SODIUM [Concomitant]
     Active Substance: AZATHIOPRINE SODIUM
     Indication: Rheumatoid arthritis
  63. BERINERT [Concomitant]
     Active Substance: HUMAN C1-ESTERASE INHIBITOR
     Indication: Product used for unknown indication
  64. BOTULINUM TOXIN TYPE A [Concomitant]
     Active Substance: BOTULINUM TOXIN TYPE A
     Indication: Product used for unknown indication
  65. BUTRANS [Concomitant]
     Active Substance: BUPRENORPHINE
     Indication: Migraine
  66. CANDESARTAN [Concomitant]
     Active Substance: CANDESARTAN
     Indication: Migraine
  67. CELEBREX [Concomitant]
     Active Substance: CELECOXIB
     Indication: Migraine
     Route: 048
  68. CELEBREX [Concomitant]
     Active Substance: CELECOXIB
  69. CERTOLIZUMAB PEGOL [Concomitant]
     Active Substance: CERTOLIZUMAB PEGOL
     Indication: Product used for unknown indication
  70. CERTOLIZUMAB PEGOL [Concomitant]
     Active Substance: CERTOLIZUMAB PEGOL
     Route: 058
  71. CERTOLIZUMAB PEGOL [Concomitant]
     Active Substance: CERTOLIZUMAB PEGOL
     Route: 058
  72. CERTOLIZUMAB PEGOL [Concomitant]
     Active Substance: CERTOLIZUMAB PEGOL
     Route: 058
  73. CERTOLIZUMAB PEGOL [Concomitant]
     Active Substance: CERTOLIZUMAB PEGOL
  74. CERTOLIZUMAB PEGOL [Concomitant]
     Active Substance: CERTOLIZUMAB PEGOL
  75. CETIRIZINE HYDROCHLORIDE [Concomitant]
     Active Substance: CETIRIZINE HYDROCHLORIDE
     Indication: Rheumatoid arthritis
     Route: 016
  76. CETIRIZINE HYDROCHLORIDE [Concomitant]
     Active Substance: CETIRIZINE HYDROCHLORIDE
  77. CETIRIZINE HYDROCHLORIDE [Concomitant]
     Active Substance: CETIRIZINE HYDROCHLORIDE
  78. CETIRIZINE HYDROCHLORIDE [Concomitant]
     Active Substance: CETIRIZINE HYDROCHLORIDE
  79. CETIRIZINE HYDROCHLORIDE [Concomitant]
     Active Substance: CETIRIZINE HYDROCHLORIDE
  80. CETIRIZINE HYDROCHLORIDE [Concomitant]
     Active Substance: CETIRIZINE HYDROCHLORIDE
  81. CETIRIZINE HYDROCHLORIDE [Concomitant]
     Active Substance: CETIRIZINE HYDROCHLORIDE
  82. CETIRIZINE HYDROCHLORIDE [Concomitant]
     Active Substance: CETIRIZINE HYDROCHLORIDE
     Route: 048
  83. CETIRIZINE HYDROCHLORIDE [Concomitant]
     Active Substance: CETIRIZINE HYDROCHLORIDE
  84. CETIRIZINE HYDROCHLORIDE [Concomitant]
     Active Substance: CETIRIZINE HYDROCHLORIDE
  85. CETIRIZINE HYDROCHLORIDE [Concomitant]
     Active Substance: CETIRIZINE HYDROCHLORIDE
  86. CETIRIZINE HYDROCHLORIDE [Concomitant]
     Active Substance: CETIRIZINE HYDROCHLORIDE
  87. CETIRIZINE HYDROCHLORIDE [Concomitant]
     Active Substance: CETIRIZINE HYDROCHLORIDE
  88. CETIRIZINE HYDROCHLORIDE [Concomitant]
     Active Substance: CETIRIZINE HYDROCHLORIDE
  89. CETIRIZINE HYDROCHLORIDE [Concomitant]
     Active Substance: CETIRIZINE HYDROCHLORIDE
  90. CETIRIZINE HYDROCHLORIDE [Concomitant]
     Active Substance: CETIRIZINE HYDROCHLORIDE
  91. CETIRIZINE HYDROCHLORIDE [Concomitant]
     Active Substance: CETIRIZINE HYDROCHLORIDE
     Route: 048
  92. CETIRIZINE HYDROCHLORIDE [Concomitant]
     Active Substance: CETIRIZINE HYDROCHLORIDE
  93. CETIRIZINE HYDROCHLORIDE [Concomitant]
     Active Substance: CETIRIZINE HYDROCHLORIDE
  94. CETIRIZINE HYDROCHLORIDE [Concomitant]
     Active Substance: CETIRIZINE HYDROCHLORIDE
  95. CETIRIZINE HYDROCHLORIDE [Concomitant]
     Active Substance: CETIRIZINE HYDROCHLORIDE
  96. CETIRIZINE HYDROCHLORIDE [Concomitant]
     Active Substance: CETIRIZINE HYDROCHLORIDE
     Route: 048
  97. CETIRIZINE HYDROCHLORIDE [Concomitant]
     Active Substance: CETIRIZINE HYDROCHLORIDE
  98. CHLORHEXIDINE GLUCONATE [Concomitant]
     Active Substance: CHLORHEXIDINE GLUCONATE
     Indication: Product used for unknown indication
  99. CHLORHEXIDINE GLUCONATE [Concomitant]
     Active Substance: CHLORHEXIDINE GLUCONATE
  100. CHLORHEXIDINE GLUCONATE [Concomitant]
     Active Substance: CHLORHEXIDINE GLUCONATE
  101. CHOLECALCIFEROL [Concomitant]
     Active Substance: CHOLECALCIFEROL
     Indication: Product used for unknown indication
  102. CIMZIA [Concomitant]
     Active Substance: CERTOLIZUMAB PEGOL
     Indication: Rheumatoid arthritis
     Route: 058
  103. CIMZIA [Concomitant]
     Active Substance: CERTOLIZUMAB PEGOL
     Route: 058
  104. CIMZIA [Concomitant]
     Active Substance: CERTOLIZUMAB PEGOL
  105. CIMZIA [Concomitant]
     Active Substance: CERTOLIZUMAB PEGOL
     Route: 058
  106. CIMZIA [Concomitant]
     Active Substance: CERTOLIZUMAB PEGOL
     Route: 058
  107. CIMZIA [Concomitant]
     Active Substance: CERTOLIZUMAB PEGOL
  108. CIMZIA [Concomitant]
     Active Substance: CERTOLIZUMAB PEGOL
     Route: 058
  109. COSENTYX [Concomitant]
     Active Substance: SECUKINUMAB
     Indication: Rheumatoid arthritis
  110. COSENTYX [Concomitant]
     Active Substance: SECUKINUMAB
  111. COSENTYX [Concomitant]
     Active Substance: SECUKINUMAB
  112. DESOXIMETASONE [Concomitant]
     Active Substance: DESOXIMETASONE
     Indication: Rheumatoid arthritis
  113. DESOXIMETASONE [Concomitant]
     Active Substance: DESOXIMETASONE
  114. DESOXIMETASONE [Concomitant]
     Active Substance: DESOXIMETASONE
  115. DESOXIMETASONE [Concomitant]
     Active Substance: DESOXIMETASONE
  116. DESOXIMETASONE [Concomitant]
     Active Substance: DESOXIMETASONE
  117. DESOXIMETASONE [Concomitant]
     Active Substance: DESOXIMETASONE
  118. DESOXIMETASONE [Concomitant]
     Active Substance: DESOXIMETASONE
     Route: 048
  119. DESOXIMETASONE [Concomitant]
     Active Substance: DESOXIMETASONE
     Route: 048
  120. DESOXIMETASONE [Concomitant]
     Active Substance: DESOXIMETASONE
     Route: 048
  121. DESOXIMETASONE [Concomitant]
     Active Substance: DESOXIMETASONE
     Route: 048
  122. DESOXIMETASONE [Concomitant]
     Active Substance: DESOXIMETASONE
     Route: 048
  123. DESOXIMETASONE [Concomitant]
     Active Substance: DESOXIMETASONE
  124. DESOXIMETASONE [Concomitant]
     Active Substance: DESOXIMETASONE
  125. DESOXIMETASONE [Concomitant]
     Active Substance: DESOXIMETASONE
  126. DESOXIMETASONE [Concomitant]
     Active Substance: DESOXIMETASONE
     Route: 048
  127. DESOXIMETASONE [Concomitant]
     Active Substance: DESOXIMETASONE
  128. DICLOFENAC DIETHYLAMINE [Concomitant]
     Active Substance: DICLOFENAC DIETHYLAMINE
     Indication: Product used for unknown indication
  129. DICLOFENAC SODIUM [Concomitant]
     Active Substance: DICLOFENAC SODIUM
     Indication: Rheumatoid arthritis
  130. DICLOFENAC SODIUM [Concomitant]
     Active Substance: DICLOFENAC SODIUM
     Route: 058
  131. DICLOFENAC SODIUM [Concomitant]
     Active Substance: DICLOFENAC SODIUM
  132. DICLOFENAC SODIUM [Concomitant]
     Active Substance: DICLOFENAC SODIUM
  133. DOMPERIDONE MALEATE [Concomitant]
     Active Substance: DOMPERIDONE MALEATE
     Indication: Product used for unknown indication
  134. ENBREL [Concomitant]
     Active Substance: ETANERCEPT
     Indication: Rheumatoid arthritis
  135. ENBREL [Concomitant]
     Active Substance: ETANERCEPT
     Route: 058
  136. ENBREL [Concomitant]
     Active Substance: ETANERCEPT
     Route: 058
  137. ENBREL [Concomitant]
     Active Substance: ETANERCEPT
     Route: 058
  138. ENBREL [Concomitant]
     Active Substance: ETANERCEPT
     Route: 058
  139. ENBREL [Concomitant]
     Active Substance: ETANERCEPT
     Route: 058
  140. ENBREL [Concomitant]
     Active Substance: ETANERCEPT
  141. ENBREL [Concomitant]
     Active Substance: ETANERCEPT
     Route: 058
  142. ENBREL [Concomitant]
     Active Substance: ETANERCEPT
     Route: 058
  143. ENBREL [Concomitant]
     Active Substance: ETANERCEPT
  144. ENBREL [Concomitant]
     Active Substance: ETANERCEPT
     Route: 058
  145. ERELZI [Concomitant]
     Active Substance: ETANERCEPT-SZZS
     Indication: Rheumatoid arthritis
  146. ERELZI [Concomitant]
     Active Substance: ETANERCEPT-SZZS
     Route: 058
  147. ERELZI [Concomitant]
     Active Substance: ETANERCEPT-SZZS
     Route: 058
  148. FLUMETHASONE [Concomitant]
     Active Substance: FLUMETHASONE
     Indication: Product used for unknown indication
  149. FLUMETHASONE PIVALATE [Concomitant]
     Active Substance: FLUMETHASONE PIVALATE
     Indication: Product used for unknown indication
  150. FLUMETHASONE PIVALATE [Concomitant]
     Active Substance: FLUMETHASONE PIVALATE
  151. FOLIC ACID [Concomitant]
     Active Substance: FOLIC ACID
     Indication: Rheumatoid arthritis
  152. FOLIC ACID [Concomitant]
     Active Substance: FOLIC ACID
     Route: 048
  153. FOLIC ACID [Concomitant]
     Active Substance: FOLIC ACID
  154. FOLIC ACID [Concomitant]
     Active Substance: FOLIC ACID
  155. FOLIC ACID [Concomitant]
     Active Substance: FOLIC ACID
     Route: 048
  156. FOLIC ACID [Concomitant]
     Active Substance: FOLIC ACID
  157. FOLIC ACID [Concomitant]
     Active Substance: FOLIC ACID
  158. FOLIC ACID [Concomitant]
     Active Substance: FOLIC ACID
     Route: 048
  159. FOLIC ACID [Concomitant]
     Active Substance: FOLIC ACID
  160. FOLIC ACID [Concomitant]
     Active Substance: FOLIC ACID
  161. FOLIC ACID [Concomitant]
     Active Substance: FOLIC ACID
  162. FOLIC ACID [Concomitant]
     Active Substance: FOLIC ACID
  163. FOLIC ACID [Concomitant]
     Active Substance: FOLIC ACID
  164. FOLIC ACID [Concomitant]
     Active Substance: FOLIC ACID
     Route: 048
  165. FOSAMAX [Concomitant]
     Active Substance: ALENDRONATE SODIUM
     Indication: Rheumatoid arthritis
  166. FOSAMAX [Concomitant]
     Active Substance: ALENDRONATE SODIUM
     Route: 048
  167. FOSAMAX [Concomitant]
     Active Substance: ALENDRONATE SODIUM
     Route: 016
  168. FOSAMAX [Concomitant]
     Active Substance: ALENDRONATE SODIUM
  169. FOSAMAX [Concomitant]
     Active Substance: ALENDRONATE SODIUM
  170. GOLD [Concomitant]
     Active Substance: GOLD
     Indication: Product used for unknown indication
  171. GOLD SODIUM THIOMALATE [Concomitant]
     Active Substance: GOLD SODIUM THIOMALATE
     Indication: Product used for unknown indication
  172. GOLIMUMAB [Concomitant]
     Active Substance: GOLIMUMAB
     Indication: Rheumatoid arthritis
     Route: 058
  173. GOLIMUMAB [Concomitant]
     Active Substance: GOLIMUMAB
     Indication: Prostatic specific antigen
  174. GOLIMUMAB [Concomitant]
     Active Substance: GOLIMUMAB
     Route: 058
  175. GOLIMUMAB [Concomitant]
     Active Substance: GOLIMUMAB
  176. HUMIRA [Concomitant]
     Active Substance: ADALIMUMAB
     Indication: Rheumatoid arthritis
     Route: 058
  177. HUMIRA [Concomitant]
     Active Substance: ADALIMUMAB
  178. HUMIRA [Concomitant]
     Active Substance: ADALIMUMAB
     Route: 058
  179. HUMIRA [Concomitant]
     Active Substance: ADALIMUMAB
     Route: 058
  180. HUMIRA [Concomitant]
     Active Substance: ADALIMUMAB
     Route: 058
  181. HYDROXYCHLOROQUINE [Concomitant]
     Active Substance: HYDROXYCHLOROQUINE
     Indication: Rheumatoid arthritis
  182. HYDROXYCHLOROQUINE [Concomitant]
     Active Substance: HYDROXYCHLOROQUINE
     Route: 048
  183. HYDROXYCHLOROQUINE [Concomitant]
     Active Substance: HYDROXYCHLOROQUINE
  184. HYDROXYCHLOROQUINE [Concomitant]
     Active Substance: HYDROXYCHLOROQUINE
     Route: 048
  185. HYDROXYCHLOROQUINE [Concomitant]
     Active Substance: HYDROXYCHLOROQUINE
     Route: 058
  186. HYDROXYCHLOROQUINE [Concomitant]
     Active Substance: HYDROXYCHLOROQUINE
  187. HYDROXYCHLOROQUINE [Concomitant]
     Active Substance: HYDROXYCHLOROQUINE
     Route: 016
  188. HYDROXYCHLOROQUINE [Concomitant]
     Active Substance: HYDROXYCHLOROQUINE
  189. HYDROXYCHLOROQUINE [Concomitant]
     Active Substance: HYDROXYCHLOROQUINE
     Route: 048
  190. HYDROXYCHLOROQUINE [Concomitant]
     Active Substance: HYDROXYCHLOROQUINE
     Route: 048
  191. HYDROXYCHLOROQUINE [Concomitant]
     Active Substance: HYDROXYCHLOROQUINE
  192. HYDROXYCHLOROQUINE [Concomitant]
     Active Substance: HYDROXYCHLOROQUINE
  193. HYDROXYCHLOROQUINE [Concomitant]
     Active Substance: HYDROXYCHLOROQUINE
  194. HYDROXYCHLOROQUINE [Concomitant]
     Active Substance: HYDROXYCHLOROQUINE
     Route: 048
  195. HYDROXYCHLOROQUINE [Concomitant]
     Active Substance: HYDROXYCHLOROQUINE
     Route: 048
  196. HYDROXYCHLOROQUINE [Concomitant]
     Active Substance: HYDROXYCHLOROQUINE
  197. HYDROXYCHLOROQUINE [Concomitant]
     Active Substance: HYDROXYCHLOROQUINE
  198. HYDROXYCHLOROQUINE [Concomitant]
     Active Substance: HYDROXYCHLOROQUINE
  199. HYDROXYCHLOROQUINE SULFATE [Concomitant]
     Active Substance: HYDROXYCHLOROQUINE SULFATE
     Indication: Rheumatoid arthritis
  200. HYDROXYCHLOROQUINE SULFATE [Concomitant]
     Active Substance: HYDROXYCHLOROQUINE SULFATE
     Route: 048
  201. HYDROXYCHLOROQUINE SULFATE [Concomitant]
     Active Substance: HYDROXYCHLOROQUINE SULFATE
  202. HYDROXYCHLOROQUINE SULFATE [Concomitant]
     Active Substance: HYDROXYCHLOROQUINE SULFATE
     Route: 048
  203. HYDROXYCHLOROQUINE SULFATE [Concomitant]
     Active Substance: HYDROXYCHLOROQUINE SULFATE
  204. HYDROXYCHLOROQUINE SULFATE [Concomitant]
     Active Substance: HYDROXYCHLOROQUINE SULFATE
     Route: 048
  205. HYDROXYCHLOROQUINE SULFATE [Concomitant]
     Active Substance: HYDROXYCHLOROQUINE SULFATE
  206. HYDROXYCHLOROQUINE SULFATE [Concomitant]
     Active Substance: HYDROXYCHLOROQUINE SULFATE
  207. HYDROXYCHLOROQUINE SULFATE [Concomitant]
     Active Substance: HYDROXYCHLOROQUINE SULFATE
  208. INFLIXIMAB [Concomitant]
     Active Substance: INFLIXIMAB
     Indication: Rheumatoid arthritis
  209. INFLIXIMAB [Concomitant]
     Active Substance: INFLIXIMAB
  210. INFLIXIMAB [Concomitant]
     Active Substance: INFLIXIMAB
  211. INFLIXIMAB [Concomitant]
     Active Substance: INFLIXIMAB
  212. INFLIXIMAB [Concomitant]
     Active Substance: INFLIXIMAB
  213. LAMICTAL [Concomitant]
     Active Substance: LAMOTRIGINE
     Indication: Product used for unknown indication
     Route: 048
  214. LAMICTAL [Concomitant]
     Active Substance: LAMOTRIGINE
     Route: 048
  215. LAMICTAL [Concomitant]
     Active Substance: LAMOTRIGINE
     Route: 048
  216. LAMICTAL [Concomitant]
     Active Substance: LAMOTRIGINE
     Route: 048
  217. LAMICTAL [Concomitant]
     Active Substance: LAMOTRIGINE
     Route: 048
  218. LAMICTAL [Concomitant]
     Active Substance: LAMOTRIGINE
     Route: 048
  219. LEFLUNOMIDE [Concomitant]
     Active Substance: LEFLUNOMIDE
     Indication: Rheumatoid arthritis
  220. LEFLUNOMIDE [Concomitant]
     Active Substance: LEFLUNOMIDE
     Route: 048
  221. LEFLUNOMIDE [Concomitant]
     Active Substance: LEFLUNOMIDE
  222. LEFLUNOMIDE [Concomitant]
     Active Substance: LEFLUNOMIDE
  223. LEFLUNOMIDE [Concomitant]
     Active Substance: LEFLUNOMIDE
  224. LEFLUNOMIDE [Concomitant]
     Active Substance: LEFLUNOMIDE
  225. METFORMIN HYDROCHLORIDE [Concomitant]
     Active Substance: METFORMIN HYDROCHLORIDE
     Indication: Rheumatoid arthritis
  226. METHOTREXATE [Concomitant]
     Active Substance: METHOTREXATE
     Indication: Rheumatoid arthritis
     Route: 013
  227. METHOTREXATE [Concomitant]
     Active Substance: METHOTREXATE
     Route: 048
  228. METHOTREXATE [Concomitant]
     Active Substance: METHOTREXATE
  229. METHOTREXATE [Concomitant]
     Active Substance: METHOTREXATE
  230. METHOTREXATE [Concomitant]
     Active Substance: METHOTREXATE
     Route: 058
  231. METHOTREXATE [Concomitant]
     Active Substance: METHOTREXATE
     Route: 048
  232. METHOTREXATE [Concomitant]
     Active Substance: METHOTREXATE
     Route: 013
  233. METHOTREXATE [Concomitant]
     Active Substance: METHOTREXATE
     Route: 048
  234. METHOTREXATE [Concomitant]
     Active Substance: METHOTREXATE
  235. METHOTREXATE [Concomitant]
     Active Substance: METHOTREXATE
     Route: 048
  236. METHOTREXATE [Concomitant]
     Active Substance: METHOTREXATE
     Route: 048
  237. METHOTREXATE [Concomitant]
     Active Substance: METHOTREXATE
  238. METHOTREXATE [Concomitant]
     Active Substance: METHOTREXATE
     Route: 048
  239. METHOTREXATE [Concomitant]
     Active Substance: METHOTREXATE
  240. METHOTREXATE [Concomitant]
     Active Substance: METHOTREXATE
     Route: 048
  241. METHOTREXATE [Concomitant]
     Active Substance: METHOTREXATE
     Route: 058
  242. METHOTREXATE [Concomitant]
     Active Substance: METHOTREXATE
  243. METHOTREXATE [Concomitant]
     Active Substance: METHOTREXATE
     Route: 048
  244. METHOTREXATE [Concomitant]
     Active Substance: METHOTREXATE
  245. METHOTREXATE [Concomitant]
     Active Substance: METHOTREXATE
     Route: 016
  246. METHOTREXATE [Concomitant]
     Active Substance: METHOTREXATE
  247. METHOTREXATE [Concomitant]
     Active Substance: METHOTREXATE
     Route: 048
  248. METHOTREXATE [Concomitant]
     Active Substance: METHOTREXATE
  249. METHYLPREDNISOLONE [Concomitant]
     Active Substance: METHYLPREDNISOLONE
     Indication: Rheumatoid arthritis
  250. METHYLPREDNISOLONE SODIUM SUCCINATE [Concomitant]
     Active Substance: METHYLPREDNISOLONE SODIUM SUCCINATE
     Indication: Rheumatoid arthritis
  251. MINOCYCLINE [Concomitant]
     Active Substance: MINOCYCLINE HYDROCHLORIDE
     Indication: Product used for unknown indication
  252. MINOCYCLINE HYDROCHLORIDE [Concomitant]
     Active Substance: MINOCYCLINE HYDROCHLORIDE
     Indication: Rheumatoid arthritis
  253. MYOCHRYSINE [Concomitant]
     Active Substance: GOLD SODIUM THIOMALATE
     Indication: Rheumatoid arthritis
     Route: 030
  254. MYRBETRIQ [Concomitant]
     Active Substance: MIRABEGRON
     Indication: Product used for unknown indication
  255. MYRBETRIQ [Concomitant]
     Active Substance: MIRABEGRON
  256. NAPROXEN [Concomitant]
     Active Substance: NAPROXEN
     Indication: Product used for unknown indication
  257. NAPROXEN SODIUM [Concomitant]
     Active Substance: NAPROXEN SODIUM
     Indication: Rheumatoid arthritis
  258. NUCALA [Concomitant]
     Active Substance: MEPOLIZUMAB
     Indication: Product used for unknown indication
  259. OXYCODONE [Concomitant]
     Active Substance: OXYCODONE
     Indication: Product used for unknown indication
  260. OXYCODONE TEREPHTHALATE [Concomitant]
     Active Substance: OXYCODONE TEREPHTHALATE
     Indication: Product used for unknown indication
  261. PHENYLEPHRINE HYDROCHLORIDE [Concomitant]
     Active Substance: PHENYLEPHRINE HYDROCHLORIDE
     Indication: Rheumatoid arthritis
  262. PHTHALYLSULFATHIAZOLE [Concomitant]
     Active Substance: PHTHALYLSULFATHIAZOLE
     Indication: Rheumatoid arthritis
     Route: 058
  263. PHTHALYLSULFATHIAZOLE [Concomitant]
     Active Substance: PHTHALYLSULFATHIAZOLE
  264. PHTHALYLSULFATHIAZOLE [Concomitant]
     Active Substance: PHTHALYLSULFATHIAZOLE
  265. PHTHALYLSULFATHIAZOLE [Concomitant]
     Active Substance: PHTHALYLSULFATHIAZOLE
  266. PHTHALYLSULFATHIAZOLE [Concomitant]
     Active Substance: PHTHALYLSULFATHIAZOLE
     Route: 048
  267. PHTHALYLSULFATHIAZOLE [Concomitant]
     Active Substance: PHTHALYLSULFATHIAZOLE
  268. PHTHALYLSULFATHIAZOLE [Concomitant]
     Active Substance: PHTHALYLSULFATHIAZOLE
     Route: 048
  269. PHTHALYLSULFATHIAZOLE [Concomitant]
     Active Substance: PHTHALYLSULFATHIAZOLE
  270. PREDNISONE [Concomitant]
     Active Substance: PREDNISONE
     Indication: Rheumatoid arthritis
  271. PREDNISONE [Concomitant]
     Active Substance: PREDNISONE
  272. PREDNISONE [Concomitant]
     Active Substance: PREDNISONE
  273. PREDNISONE [Concomitant]
     Active Substance: PREDNISONE
  274. PREDNISONE [Concomitant]
     Active Substance: PREDNISONE
     Route: 048
  275. PREDNISONE [Concomitant]
     Active Substance: PREDNISONE
  276. PREDNISONE [Concomitant]
     Active Substance: PREDNISONE
     Route: 048
  277. PREDNISONE [Concomitant]
     Active Substance: PREDNISONE
     Route: 048
  278. PREDNISONE [Concomitant]
     Active Substance: PREDNISONE
     Route: 048
  279. PREDNISONE [Concomitant]
     Active Substance: PREDNISONE
     Route: 048
  280. PSEUDOEPHEDRINE HYDROCHLORIDE [Concomitant]
     Active Substance: PSEUDOEPHEDRINE HYDROCHLORIDE
     Indication: Rheumatoid arthritis
  281. PSEUDOEPHEDRINE HYDROCHLORIDE [Concomitant]
     Active Substance: PSEUDOEPHEDRINE HYDROCHLORIDE
  282. PSEUDOEPHEDRINE HYDROCHLORIDE [Concomitant]
     Active Substance: PSEUDOEPHEDRINE HYDROCHLORIDE
  283. PSEUDOEPHEDRINE HYDROCHLORIDE [Concomitant]
     Active Substance: PSEUDOEPHEDRINE HYDROCHLORIDE
  284. RAMIPRIL [Concomitant]
     Active Substance: RAMIPRIL
     Indication: Rheumatoid arthritis
  285. RAMIPRIL [Concomitant]
     Active Substance: RAMIPRIL
  286. RAMIPRIL [Concomitant]
     Active Substance: RAMIPRIL
     Route: 016
  287. RANITIDINE [Concomitant]
     Active Substance: RANITIDINE
     Indication: Product used for unknown indication
  288. CETIRIZINE HYDROCHLORIDE\PSEUDOEPHEDRINE HYDROCHLORIDE [Concomitant]
     Active Substance: CETIRIZINE HYDROCHLORIDE\PSEUDOEPHEDRINE HYDROCHLORIDE
     Indication: Rheumatoid arthritis
  289. CETIRIZINE HYDROCHLORIDE\PSEUDOEPHEDRINE HYDROCHLORIDE [Concomitant]
     Active Substance: CETIRIZINE HYDROCHLORIDE\PSEUDOEPHEDRINE HYDROCHLORIDE
  290. CETIRIZINE HYDROCHLORIDE\PSEUDOEPHEDRINE HYDROCHLORIDE [Concomitant]
     Active Substance: CETIRIZINE HYDROCHLORIDE\PSEUDOEPHEDRINE HYDROCHLORIDE
  291. CETIRIZINE HYDROCHLORIDE\PSEUDOEPHEDRINE HYDROCHLORIDE [Concomitant]
     Active Substance: CETIRIZINE HYDROCHLORIDE\PSEUDOEPHEDRINE HYDROCHLORIDE
  292. CETIRIZINE HYDROCHLORIDE\PSEUDOEPHEDRINE HYDROCHLORIDE [Concomitant]
     Active Substance: CETIRIZINE HYDROCHLORIDE\PSEUDOEPHEDRINE HYDROCHLORIDE
  293. CETIRIZINE HYDROCHLORIDE\PSEUDOEPHEDRINE HYDROCHLORIDE [Concomitant]
     Active Substance: CETIRIZINE HYDROCHLORIDE\PSEUDOEPHEDRINE HYDROCHLORIDE
  294. CETIRIZINE HYDROCHLORIDE\PSEUDOEPHEDRINE HYDROCHLORIDE [Concomitant]
     Active Substance: CETIRIZINE HYDROCHLORIDE\PSEUDOEPHEDRINE HYDROCHLORIDE
  295. REMICADE [Concomitant]
     Active Substance: INFLIXIMAB
     Indication: Rheumatoid arthritis
     Route: 058
  296. REMICADE [Concomitant]
     Active Substance: INFLIXIMAB
     Route: 058
  297. REMICADE [Concomitant]
     Active Substance: INFLIXIMAB
  298. REMICADE [Concomitant]
     Active Substance: INFLIXIMAB
  299. REMICADE [Concomitant]
     Active Substance: INFLIXIMAB
  300. REMICADE [Concomitant]
     Active Substance: INFLIXIMAB
  301. REMICADE [Concomitant]
     Active Substance: INFLIXIMAB
  302. RITUXIMAB [Concomitant]
     Active Substance: RITUXIMAB
     Indication: Rheumatoid arthritis
  303. RITUXIMAB [Concomitant]
     Active Substance: RITUXIMAB
  304. RITUXIMAB [Concomitant]
     Active Substance: RITUXIMAB
     Route: 043
  305. RITUXIMAB [Concomitant]
     Active Substance: RITUXIMAB
  306. RITUXIMAB [Concomitant]
     Active Substance: RITUXIMAB
  307. RITUXIMAB [Concomitant]
     Active Substance: RITUXIMAB
  308. RITUXIMAB [Concomitant]
     Active Substance: RITUXIMAB
  309. RITUXIMAB [Concomitant]
     Active Substance: RITUXIMAB
     Route: 016
  310. RITUXIMAB [Concomitant]
     Active Substance: RITUXIMAB
     Route: 016
  311. RITUXIMAB [Concomitant]
     Active Substance: RITUXIMAB
     Route: 016
  312. RITUXIMAB [Concomitant]
     Active Substance: RITUXIMAB
  313. RITUXIMAB [Concomitant]
     Active Substance: RITUXIMAB
     Route: 058
  314. RITUXIMAB [Concomitant]
     Active Substance: RITUXIMAB
  315. RITUXIMAB [Concomitant]
     Active Substance: RITUXIMAB
  316. RITUXIMAB [Concomitant]
     Active Substance: RITUXIMAB
  317. RITUXIMAB [Concomitant]
     Active Substance: RITUXIMAB
     Route: 040
  318. RITUXIMAB [Concomitant]
     Active Substance: RITUXIMAB
     Route: 043
  319. SIMPONI [Concomitant]
     Active Substance: GOLIMUMAB
     Indication: Rheumatoid arthritis
     Route: 058
  320. SIMPONI [Concomitant]
     Active Substance: GOLIMUMAB
     Route: 058
  321. SIMPONI [Concomitant]
     Active Substance: GOLIMUMAB
     Route: 058
  322. SIMPONI [Concomitant]
     Active Substance: GOLIMUMAB
  323. SIMPONI [Concomitant]
     Active Substance: GOLIMUMAB
  324. SIRUKUMAB [Concomitant]
     Active Substance: SIRUKUMAB
     Indication: Product used for unknown indication
  325. GOLD SODIUM THIOMALATE [Concomitant]
     Active Substance: GOLD SODIUM THIOMALATE
     Indication: Product used for unknown indication
  326. GOLD SODIUM THIOMALATE [Concomitant]
     Active Substance: GOLD SODIUM THIOMALATE
  327. GOLD SODIUM THIOMALATE [Concomitant]
     Active Substance: GOLD SODIUM THIOMALATE
     Route: 048
  328. SULFASALAZINE [Concomitant]
     Active Substance: SULFASALAZINE
     Indication: Rheumatoid arthritis
     Route: 048
  329. SULFASALAZINE [Concomitant]
     Active Substance: SULFASALAZINE
     Route: 058
  330. SULFASALAZINE [Concomitant]
     Active Substance: SULFASALAZINE
  331. SULFASALAZINE [Concomitant]
     Active Substance: SULFASALAZINE
  332. SULFASALAZINE [Concomitant]
     Active Substance: SULFASALAZINE
     Route: 048
  333. SULFASALAZINE [Concomitant]
     Active Substance: SULFASALAZINE
     Route: 048
  334. SULFASALAZINE [Concomitant]
     Active Substance: SULFASALAZINE
     Route: 048
  335. SULFASALAZINE [Concomitant]
     Active Substance: SULFASALAZINE
     Route: 048
  336. SULFASALAZINE [Concomitant]
     Active Substance: SULFASALAZINE
     Route: 058
  337. SULFASALAZINE [Concomitant]
     Active Substance: SULFASALAZINE
  338. SULFASALAZINE [Concomitant]
     Active Substance: SULFASALAZINE
  339. SULFASALAZINE [Concomitant]
     Active Substance: SULFASALAZINE
  340. SULFASALAZINE [Concomitant]
     Active Substance: SULFASALAZINE
  341. SULFASALAZINE [Concomitant]
     Active Substance: SULFASALAZINE
     Route: 058
  342. SULFASALAZINE [Concomitant]
     Active Substance: SULFASALAZINE
     Route: 058
  343. SULFASALAZINE [Concomitant]
     Active Substance: SULFASALAZINE
  344. SULFASALAZINE [Concomitant]
     Active Substance: SULFASALAZINE
     Route: 058
  345. SULFASALAZINE [Concomitant]
     Active Substance: SULFASALAZINE
  346. SULFASALAZINE [Concomitant]
     Active Substance: SULFASALAZINE
  347. SULFASALAZINE [Concomitant]
     Active Substance: SULFASALAZINE
     Route: 048
  348. SULFASALAZINE [Concomitant]
     Active Substance: SULFASALAZINE
     Route: 048
  349. SULFASALAZINE [Concomitant]
     Active Substance: SULFASALAZINE
     Route: 016
  350. SULFASALAZINE [Concomitant]
     Active Substance: SULFASALAZINE
     Route: 048
  351. SULFASALAZINE [Concomitant]
     Active Substance: SULFASALAZINE
  352. SULFASALAZINE [Concomitant]
     Active Substance: SULFASALAZINE
     Route: 058
  353. TETRACYCLINE HYDROCHLORIDE [Concomitant]
     Active Substance: TETRACYCLINE HYDROCHLORIDE
     Indication: Rheumatoid arthritis
  354. TOCILIZUMAB [Concomitant]
     Active Substance: TOCILIZUMAB
     Indication: Rheumatoid arthritis
  355. TOCILIZUMAB [Concomitant]
     Active Substance: TOCILIZUMAB
     Route: 058
  356. TOCILIZUMAB [Concomitant]
     Active Substance: TOCILIZUMAB
  357. TOCILIZUMAB [Concomitant]
     Active Substance: TOCILIZUMAB
  358. TOCILIZUMAB [Concomitant]
     Active Substance: TOCILIZUMAB
  359. TOCILIZUMAB [Concomitant]
     Active Substance: TOCILIZUMAB
     Route: 058
  360. TOCILIZUMAB [Concomitant]
     Active Substance: TOCILIZUMAB
     Route: 016
  361. TOFACITINIB CITRATE [Concomitant]
     Active Substance: TOFACITINIB CITRATE
     Indication: Rheumatoid arthritis
  362. TOFACITINIB CITRATE [Concomitant]
     Active Substance: TOFACITINIB CITRATE
  363. TOFACITINIB CITRATE [Concomitant]
     Active Substance: TOFACITINIB CITRATE
  364. TOPIRAMATE [Concomitant]
     Active Substance: TOPIRAMATE
     Indication: Rheumatoid arthritis
  365. TOPIRAMATE [Concomitant]
     Active Substance: TOPIRAMATE
  366. TOPIRAMATE [Concomitant]
     Active Substance: TOPIRAMATE
  367. TOPIRAMATE [Concomitant]
     Active Substance: TOPIRAMATE
  368. TRAMADOL HYDROCHLORIDE [Concomitant]
     Active Substance: TRAMADOL HYDROCHLORIDE
     Indication: Product used for unknown indication
  369. XELJANZ [Concomitant]
     Active Substance: TOFACITINIB CITRATE
     Indication: Rheumatoid arthritis
  370. XELJANZ [Concomitant]
     Active Substance: TOFACITINIB CITRATE
     Route: 048
  371. XELJANZ [Concomitant]
     Active Substance: TOFACITINIB CITRATE
     Route: 048
  372. XELJANZ [Concomitant]
     Active Substance: TOFACITINIB CITRATE
  373. XELJANZ [Concomitant]
     Active Substance: TOFACITINIB CITRATE
     Route: 048
  374. XELJANZ [Concomitant]
     Active Substance: TOFACITINIB CITRATE
  375. XELJANZ [Concomitant]
     Active Substance: TOFACITINIB CITRATE
  376. XELJANZ [Concomitant]
     Active Substance: TOFACITINIB CITRATE

REACTIONS (1)
  - Death [Fatal]
